FAERS Safety Report 26125789 (Version 2)
Quarter: 2025Q4

REPORT INFORMATION
  Report Type: Report from Study
  Country: EU (occurrence: EU)
  Receive Date: 20251205
  Receipt Date: 20251211
  Transmission Date: 20260118
  Serious: Yes (Death, Hospitalization, Other)
  Sender: PFIZER
  Company Number: EU-PFM-2025-05546

PATIENT
  Sex: Male
  Weight: 75 kg

DRUGS (19)
  1. BRAFTOVI [Suspect]
     Active Substance: ENCORAFENIB
     Indication: Colorectal cancer
     Dosage: 300 MG, DAILY
     Route: 048
     Dates: start: 20250326, end: 20250911
  2. CETUXIMAB [Suspect]
     Active Substance: CETUXIMAB
     Indication: Colorectal cancer
     Dosage: 250 MG/M2, WEEKLY(LIQUID DILUTION)
     Route: 042
     Dates: start: 20250325, end: 20250818
  3. AMPHO-MORONAL [Concomitant]
     Active Substance: AMPHOTERICIN B
     Indication: Prophylaxis
     Dosage: 100 MG, 4X/DAY
     Route: 048
     Dates: start: 20250911
  4. DOXYCYCLIN RATIOPHARM [DOXYCYCLINE HYDROCHLORIDE] [Concomitant]
     Indication: Prophylaxis
     Dosage: 100 MG, DAILY
     Route: 048
     Dates: start: 20250911
  5. PANTOZOL [ERYTHROMYCIN ETHYLSUCCINATE;SULFAFURAZOLE] [Concomitant]
     Indication: Prophylaxis
     Dosage: 20 MG, DAILY
     Route: 048
     Dates: start: 20250630
  6. ZOPICLONE [Concomitant]
     Active Substance: ZOPICLONE
     Indication: Sleep disorder
     Dosage: 7.5 MG, AS NEEDED
     Route: 048
     Dates: start: 20250911
  7. IBUPROFEN [Concomitant]
     Active Substance: IBUPROFEN
     Indication: Spinal pain
     Dosage: 400 MG, AS NEEDED
     Route: 048
     Dates: start: 20250911
  8. BISOPROLOL RATIOPHARM [Concomitant]
     Indication: Hypertension
     Dosage: 5 MG, DAILY
     Dates: start: 20250911
  9. BEPANTHEN [PANTHENOL] [Concomitant]
     Indication: Prophylaxis
     Dosage: 1 UNKNOWN FOUR TIMES A DAY
     Route: 048
     Dates: start: 20250911
  10. LOPERAMIDE HYDROCHLORIDE [Concomitant]
     Active Substance: LOPERAMIDE HYDROCHLORIDE
     Indication: Diarrhoea
     Dosage: 2 MG, AS NEEDED
     Dates: start: 20250911
  11. METAMIZOLE [Concomitant]
     Active Substance: METAMIZOLE
     Indication: Spinal pain
     Dosage: 500 MG, QID (4/DAY)
     Route: 048
     Dates: start: 20250911
  12. GRANISETRON RATIOPHARM [Concomitant]
     Indication: Nausea
     Dosage: 2 MG, AS NEEDED
     Route: 048
     Dates: start: 20250911
  13. HCT RATIOPHARM [Concomitant]
     Indication: Hypertension
     Dosage: 12.5 MG, DAILY
     Route: 048
     Dates: start: 20250911
  14. INSULIN GLARGINE [Concomitant]
     Active Substance: INSULIN GLARGINE
     Indication: Diabetes mellitus
     Dosage: 8 IU, DAILY
     Route: 058
     Dates: start: 20250802
  15. LINOLA RADIO DERM [Concomitant]
     Indication: Prophylaxis
     Dosage: 1 UNKNOWN FOUR TIMES A DAY
     Route: 061
     Dates: start: 20250911
  16. METOCLOPRAMIDE [Concomitant]
     Active Substance: METOCLOPRAMIDE
     Indication: Nausea
     Dosage: 10 MG, AS NEEDED
     Route: 048
     Dates: start: 20250911
  17. PANKREATIN MIKRO [Concomitant]
     Indication: Diabetes mellitus
     Dosage: 25 KIU/ML
     Route: 048
     Dates: start: 20250616
  18. NOVORAPID [Concomitant]
     Active Substance: INSULIN ASPART
     Indication: Diabetes mellitus
     Dosage: 1 IU, AS NEEDED
     Route: 058
     Dates: start: 20250911
  19. MINOCYCLINE HYDROCHLORIDE [Concomitant]
     Active Substance: MINOCYCLINE HYDROCHLORIDE
     Indication: Prophylaxis
     Dosage: UNK, 1 UNKNOWN
     Route: 048
     Dates: start: 20250616

REACTIONS (13)
  - Aspiration [Fatal]
  - Neurological symptom [Not Recovered/Not Resolved]
  - Meningitis [Recovered/Resolved]
  - Microcytic anaemia [Not Recovered/Not Resolved]
  - Weight decreased [Not Recovered/Not Resolved]
  - Hyperglycaemia [Not Recovered/Not Resolved]
  - Accommodation disorder [Not Recovered/Not Resolved]
  - Weight decreased [Not Recovered/Not Resolved]
  - Nocturia [Not Recovered/Not Resolved]
  - Fatigue [Not Recovered/Not Resolved]
  - Headache [Recovered/Resolved]
  - Fatigue [Not Recovered/Not Resolved]
  - Malaise [Not Recovered/Not Resolved]

NARRATIVE: CASE EVENT DATE: 20250610
